FAERS Safety Report 12358694 (Version 1)
Quarter: 2016Q2

REPORT INFORMATION
  Report Type: Spontaneous
  Country: US (occurrence: None)
  Receive Date: 20160511
  Receipt Date: 20160511
  Transmission Date: 20160815
  Serious: No
  Sender: FDA-Public Use
  Company Number: None

PATIENT
  Age: 66 Year
  Sex: Female
  Weight: 99.79 kg

DRUGS (1)
  1. SAXENDA [Suspect]
     Active Substance: LIRAGLUTIDE
     Indication: OBESITY
     Route: 058
     Dates: start: 20160330, end: 20160506

REACTIONS (4)
  - Headache [None]
  - Oropharyngeal pain [None]
  - Constipation [None]
  - Gallbladder pain [None]

NARRATIVE: CASE EVENT DATE: 20160502
